FAERS Safety Report 9735816 (Version 1)
Quarter: 2013Q4

REPORT INFORMATION
  Report Type: Spontaneous
  Country: US (occurrence: US)
  Receive Date: 20131206
  Receipt Date: 20131206
  Transmission Date: 20140711
  Serious: No
  Sender: FDA-Public Use
  Company Number: US-GILEAD-2009-0023814

PATIENT
  Age: 41 Year
  Sex: Female

DRUGS (9)
  1. LETAIRIS [Suspect]
     Indication: PULMONARY ARTERIAL HYPERTENSION
     Route: 048
     Dates: start: 20090814
  2. LETAIRIS [Suspect]
     Route: 048
     Dates: start: 20090801, end: 20090813
  3. REVATIO [Concomitant]
  4. WARFARIN [Concomitant]
  5. LASIX [Concomitant]
  6. PREDNISONE [Concomitant]
  7. AZATHIOPRINE [Concomitant]
  8. OMEPRAZOLE [Concomitant]
  9. COLCHICIN [Concomitant]

REACTIONS (2)
  - Paraesthesia [Recovered/Resolved]
  - Local swelling [Not Recovered/Not Resolved]
